FAERS Safety Report 5892477-X (Version None)
Quarter: 2008Q3

REPORT INFORMATION
  Report Type: 
  Country: None (occurrence: None)
  Receive Date: 20080923
  Receipt Date: 20080912
  Transmission Date: 20090109
  Serious: Yes (Other)
  Sender: FDA-Public Use
  Company Number: SE-JNJFOC-20080903408

PATIENT
  Sex: Female

DRUGS (2)
  1. REMICADE [Suspect]
     Indication: INFLAMMATORY BOWEL DISEASE
     Dosage: ONE INFUSION
     Route: 042
  2. HUMIRA [Concomitant]

REACTIONS (2)
  - PNEUMONIA LEGIONELLA [None]
  - PNEUMONIA PNEUMOCOCCAL [None]
